FAERS Safety Report 8615539-2 (Version None)
Quarter: 2012Q3

REPORT INFORMATION
  Report Type: 
  Country: None (occurrence: None)
  Receive Date: 20120823
  Receipt Date: 20120820
  Transmission Date: 20120928
  Serious: Yes (Hospitalization, Other)
  Sender: FDA-Public Use
  Company Number: US-JNJFOC-20120710281

PATIENT
  Sex: Female

DRUGS (1)
  1. DOXORUBICIN HYDROCHLORIDE [Suspect]
     Indication: OVARIAN CANCER
     Dosage: EVERY 4 WEEKS
     Route: 042
     Dates: start: 20120716

REACTIONS (3)
  - INTESTINAL OBSTRUCTION [None]
  - INFUSION RELATED REACTION [None]
  - HYPERSENSITIVITY [None]
